FAERS Safety Report 5994514-0 (Version None)
Quarter: 2008Q4

REPORT INFORMATION
  Report Type: 
  Country: None (occurrence: None)
  Receive Date: 20081209
  Receipt Date: 20080820
  Transmission Date: 20090506
  Serious: No
  Sender: FDA-Public Use
  Company Number: 002#2#2008-00550

PATIENT
  Age: 81 Year
  Sex: Male
  Weight: 77.1115 kg

DRUGS (14)
  1. NEUPRO [Suspect]
     Indication: PARKINSON'S DISEASE
     Dosage: 2MG/24H,1 IN 1 D,TRANSDERMAL ; 4MG/24H,1 IN 1 D,TRANSDERMAL
     Route: 062
     Dates: end: 20080618
  2. NEUPRO [Suspect]
     Indication: PARKINSON'S DISEASE
     Dosage: 2MG/24H,1 IN 1 D,TRANSDERMAL ; 4MG/24H,1 IN 1 D,TRANSDERMAL
     Route: 062
     Dates: start: 20070821
  3. CARBIDOPA AND LEVODOPA [Concomitant]
  4. COMTAN [Concomitant]
  5. AZILECT [Concomitant]
  6. SERTRALINE [Concomitant]
  7. ROPINIROLE [Concomitant]
  8. CALCIUM WITH VITAMIN D [Concomitant]
  9. FISH OIL [Concomitant]
  10. MULTI-VITAMIN [Concomitant]
  11. CO Q 10 [Concomitant]
  12. ENTACAPONE [Concomitant]
  13. DETROL LA [Concomitant]
  14. FLOMAX [Concomitant]

REACTIONS (6)
  - DRUG INEFFECTIVE [None]
  - HYPOKINESIA [None]
  - MENTAL DISORDER [None]
  - PARKINSON'S DISEASE [None]
  - PRODUCT QUALITY ISSUE [None]
  - SOMNOLENCE [None]
